FAERS Safety Report 5637125-9 (Version None)
Quarter: 2008Q1

REPORT INFORMATION
  Report Type: 
  Country: None (occurrence: None)
  Receive Date: 20080225
  Receipt Date: 20080213
  Transmission Date: 20080703
  Serious: Yes (Hospitalization)
  Sender: FDA-Public Use
  Company Number: JP-ROCHE-541378

PATIENT
  Age: 59 Year
  Sex: Male
  Weight: 74 kg

DRUGS (8)
  1. PEGASYS [Suspect]
     Route: 058
     Dates: start: 20070718, end: 20071212
  2. PEGASYS [Suspect]
     Route: 058
     Dates: start: 20071226
  3. COPEGUS [Suspect]
     Dosage: DOSE DECREASED
     Route: 048
     Dates: start: 20070718, end: 20070926
  4. COPEGUS [Suspect]
     Dosage: DIVIDED INTO 2 DOSES
     Route: 048
     Dates: start: 20070927, end: 20071212
  5. COPEGUS [Suspect]
     Dosage: DIVIDED INTO 2 DOSES
     Route: 048
     Dates: start: 20071226
  6. MAXIPIME [Concomitant]
     Dosage: ROUTE REPORTED AS INJECTABLE
     Route: 050
     Dates: start: 20071217, end: 20071218
  7. FLOMOX [Concomitant]
     Route: 048
     Dates: start: 20071217, end: 20071221
  8. LOBU [Concomitant]
     Route: 048
     Dates: start: 20071217, end: 20071221

REACTIONS (2)
  - CONFUSIONAL STATE [None]
  - CONVULSION [None]
